FAERS Safety Report 14546912 (Version 9)
Quarter: 2018Q2

REPORT INFORMATION
  Report Type: Spontaneous
  Country: US (occurrence: US)
  Receive Date: 20180219
  Receipt Date: 20180615
  Transmission Date: 20180711
  Serious: Yes (Hospitalization)
  Sender: FDA-Public Use
  Company Number: US-PFIZER INC-2018065907

PATIENT
  Age: 79 Year
  Sex: Female
  Weight: 52.61 kg

DRUGS (8)
  1. PROTONIX [Concomitant]
     Active Substance: PANTOPRAZOLE SODIUM
     Dosage: UNK
  2. POTASSIUM [Concomitant]
     Active Substance: POTASSIUM
     Dosage: UNK
  3. ELIQUIS [Concomitant]
     Active Substance: APIXABAN
     Dosage: UNK
  4. DILTIAZEM. [Concomitant]
     Active Substance: DILTIAZEM
     Dosage: UNK
  5. ZOLOFT [Concomitant]
     Active Substance: SERTRALINE HYDROCHLORIDE
     Dosage: UNK
  6. STOOL SOFTENER (DOCUSATE) [Concomitant]
     Active Substance: DOCUSATE
     Dosage: UNK
  7. SUTENT [Suspect]
     Active Substance: SUNITINIB MALATE
     Indication: GASTROINTESTINAL STROMAL TUMOUR
     Dosage: 50 MG, DAILY
     Dates: start: 20180204, end: 20180218
  8. SUTENT [Suspect]
     Active Substance: SUNITINIB MALATE
     Indication: RENAL CANCER STAGE IV
     Dosage: 50 MG, ALTERNATE DAY (EVERY OTHER DAY)
     Dates: start: 20180313

REACTIONS (26)
  - Syncope [Unknown]
  - Malaise [Unknown]
  - Balance disorder [Not Recovered/Not Resolved]
  - Decreased appetite [Recovering/Resolving]
  - Hyperhidrosis [Unknown]
  - Somnolence [Unknown]
  - Arthralgia [Not Recovered/Not Resolved]
  - Lacrimation increased [Unknown]
  - Dehydration [Not Recovered/Not Resolved]
  - Weight decreased [Unknown]
  - Asthenia [Unknown]
  - Asthenia [Not Recovered/Not Resolved]
  - Dizziness [Unknown]
  - Pruritus [Unknown]
  - Rhinorrhoea [Unknown]
  - Salivary hypersecretion [Unknown]
  - Drug dose omission [Unknown]
  - Blood potassium decreased [Unknown]
  - Feeling abnormal [Unknown]
  - Vomiting [Unknown]
  - Neoplasm progression [Unknown]
  - Oral pain [Unknown]
  - Blood magnesium decreased [Unknown]
  - Fatigue [Unknown]
  - Glossodynia [Not Recovered/Not Resolved]
  - Nail discomfort [Unknown]

NARRATIVE: CASE EVENT DATE: 201802
